FAERS Safety Report 5501557-X (Version None)
Quarter: 2007Q4

REPORT INFORMATION
  Report Type: 
  Country: None (occurrence: None)
  Receive Date: 20071022
  Receipt Date: 20070807
  Transmission Date: 20080405
  Serious: No
  Sender: FDA-Public Use
  Company Number: SPV1-2007-03778

PATIENT
  Age: 9 Year
  Sex: Male
  Weight: 32.7 kg

DRUGS (3)
  1. VYVANSE [Suspect]
     Indication: ATTENTION DEFICIT/HYPERACTIVITY DISORDER
     Dosage: 450 MG, 1X/DAY; QD, ORAL
     Route: 048
     Dates: start: 20070721, end: 20070731
  2. ADDERALL XR (AMFETAMINE ASPARATATE, AMFETAMINE SULFATE, DEXAMFETAMINE, [Concomitant]
  3. NASONEX [Concomitant]

REACTIONS (1)
  - ABNORMAL BEHAVIOUR [None]
